FAERS Safety Report 7130661-8 (Version None)
Quarter: 2010Q4

REPORT INFORMATION
  Report Type: 
  Country: None (occurrence: None)
  Receive Date: 20101201
  Receipt Date: 20101125
  Transmission Date: 20110411
  Serious: Yes (Hospitalization)
  Sender: FDA-Public Use
  Company Number: NL-PFIZER INC-2010147998

PATIENT
  Age: 39 Year
  Sex: Female

DRUGS (3)
  1. SOMATROPIN [Suspect]
     Indication: GROWTH HORMONE DEFICIENCY
     Dosage: 0.6 MG, UNK
     Dates: start: 20060515, end: 20101018
  2. NIFEDIPINE [Concomitant]
     Dosage: 30 MG, 1X/DAY
  3. DEPO-PROVERA [Concomitant]

REACTIONS (1)
  - BASAL CELL CARCINOMA [None]
